FAERS Safety Report 8200565-8 (Version None)
Quarter: 2012Q1

REPORT INFORMATION
  Report Type: 
  Country: None (occurrence: None)
  Receive Date: 20120312
  Receipt Date: 20120227
  Transmission Date: 20120608
  Serious: Yes (Hospitalization, Other)
  Sender: FDA-Public Use
  Company Number: IR-MYLANLABS-2012S1005248

PATIENT
  Age: 25 Year
  Sex: Female

DRUGS (1)
  1. MALATHION [Suspect]
     Indication: SUICIDE ATTEMPT
     Route: 042

REACTIONS (3)
  - TOXICITY TO VARIOUS AGENTS [None]
  - PLEURAL EFFUSION [None]
  - SUICIDE ATTEMPT [None]
